FAERS Safety Report 10896653 (Version 2)
Quarter: 2015Q2

REPORT INFORMATION
  Report Type: Spontaneous
  Country: DE (occurrence: DE)
  Receive Date: 20150309
  Receipt Date: 20150407
  Transmission Date: 20150821
  Serious: Yes (Life-Threatening, Hospitalization)
  Sender: FDA-Public Use
  Company Number: DE-JNJFOC-20150112743

PATIENT
  Age: 76 Year
  Sex: Male

DRUGS (2)
  1. PREDNISONE. [Concomitant]
     Active Substance: PREDNISONE
     Route: 065
     Dates: start: 20150108, end: 20150120
  2. ZYTIGA [Suspect]
     Active Substance: ABIRATERONE ACETATE
     Indication: PRODUCT USED FOR UNKNOWN INDICATION
     Route: 048
     Dates: start: 20150108, end: 20150120

REACTIONS (21)
  - Asthenia [Not Recovered/Not Resolved]
  - Drug intolerance [Unknown]
  - Urinary tract infection [Unknown]
  - General physical health deterioration [Recovering/Resolving]
  - Diverticulum [Unknown]
  - Dizziness [Recovering/Resolving]
  - Pyrexia [Not Recovered/Not Resolved]
  - Fatigue [Not Recovered/Not Resolved]
  - Haemorrhoids [Unknown]
  - Anaemia [Not Recovered/Not Resolved]
  - Prostate cancer [Unknown]
  - Gastric disorder [Unknown]
  - Weight decreased [Not Recovered/Not Resolved]
  - Chronic obstructive pulmonary disease [Unknown]
  - Haemoglobin decreased [Unknown]
  - Hypertension [Unknown]
  - Renal disorder [Not Recovered/Not Resolved]
  - Apathy [Not Recovered/Not Resolved]
  - Hypersomnia [Not Recovered/Not Resolved]
  - Metastases to liver [Unknown]
  - Hypokalaemia [Not Recovered/Not Resolved]

NARRATIVE: CASE EVENT DATE: 20150117
